FAERS Safety Report 5875709-3 (Version None)
Quarter: 2008Q3

REPORT INFORMATION
  Report Type: 
  Country: None (occurrence: None)
  Receive Date: 20080905
  Receipt Date: 20080819
  Transmission Date: 20090109
  Serious: Yes (Other)
  Sender: FDA-Public Use
  Company Number: 8036099

PATIENT
  Age: 50 Year
  Sex: Male
  Weight: 115.4 kg

DRUGS (6)
  1. CIMZIA [Suspect]
     Indication: CROHN'S DISEASE
     Dosage: 400 MG  SC
     Route: 058
     Dates: start: 20080807, end: 20080807
  2. METFORMIN HCL [Concomitant]
  3. POTASSIUM CHLORIDE [Concomitant]
  4. AVANDIA [Concomitant]
  5. ENALAPRIL [Concomitant]
  6. POTASSIUM PHOSPHATES [Concomitant]

REACTIONS (3)
  - BODY TEMPERATURE INCREASED [None]
  - NAUSEA [None]
  - VOMITING [None]
